FAERS Safety Report 14743083 (Version 1)
Quarter: 2018Q2

REPORT INFORMATION
  Report Type: Spontaneous
  Country: US (occurrence: US)
  Receive Date: 20180410
  Receipt Date: 20180410
  Transmission Date: 20180711
  Serious: No
  Sender: FDA-Public Use
  Company Number: US-SEPTODONT-201703982

PATIENT
  Age: 7 Decade
  Sex: Female

DRUGS (1)
  1. LIDOCAINE HYDROCHLORIDE 2% WITH EPINEPHRINE 1:100,000 INJECTION [Suspect]
     Active Substance: EPINEPHRINE\LIDOCAINE HYDROCHLORIDE
     Indication: LOCAL ANAESTHESIA
     Dosage: 25G SHORT NEEDLE
     Route: 004
     Dates: start: 20170410, end: 20170410

REACTIONS (2)
  - Injection site swelling [Recovered/Resolved]
  - Injection site vesicles [Recovered/Resolved]

NARRATIVE: CASE EVENT DATE: 20170410
